FAERS Safety Report 23875630 (Version 1)
Quarter: 2024Q2

REPORT INFORMATION
  Report Type: Spontaneous
  Country: RS (occurrence: RS)
  Receive Date: 20240520
  Receipt Date: 20240520
  Transmission Date: 20240715
  Serious: Yes (Other)
  Sender: FDA-Public Use
  Company Number: RS-002147023-NVSC2024RS100958

PATIENT

DRUGS (1)
  1. RUXOLITINIB [Suspect]
     Active Substance: RUXOLITINIB
     Indication: Myelofibrosis
     Dosage: 20 MG, BID
     Route: 065
     Dates: start: 201710

REACTIONS (3)
  - Blood lactate dehydrogenase increased [Recovering/Resolving]
  - Myeloproliferative neoplasm [Recovering/Resolving]
  - White blood cell count increased [Recovering/Resolving]
